FAERS Safety Report 5400622-5 (Version None)
Quarter: 2007Q3

REPORT INFORMATION
  Report Type: 
  Country: None (occurrence: None)
  Receive Date: 20070730
  Receipt Date: 20070504
  Transmission Date: 20080115
  Serious: No
  Sender: FDA-Public Use
  Company Number: A0650139A

PATIENT
  Sex: Male

DRUGS (1)
  1. ZANTAC 150 [Suspect]
     Indication: DRUG USE FOR UNKNOWN INDICATION
     Dosage: 150MG UNKNOWN
     Route: 065

REACTIONS (5)
  - DISORIENTATION [None]
  - HYPERHIDROSIS [None]
  - NERVOUSNESS [None]
  - OCULAR HYPERAEMIA [None]
  - TREMOR [None]
